FAERS Safety Report 4886711-2 (Version None)
Quarter: 2005Q4

REPORT INFORMATION
  Report Type: 
  Country: None (occurrence: None)
  Receive Date: 20051220
  Receipt Date: 20050125
  Transmission Date: 20060501
  Serious: Yes (Hospitalization, Other)
  Sender: FDA-Public Use
  Company Number: HQWYE904127JAN05

PATIENT
  Age: 57 Year
  Sex: Female
  Weight: 72.64 kg

DRUGS (8)
  1. EFFEXOR XR [Suspect]
     Indication: DEPRESSION
     Dosage: 150 DAILY, ORAL
     Route: 048
     Dates: start: 20041001
  2. GEODON [Suspect]
     Indication: BIPOLAR DISORDER
     Dosage: 40/120 TWICE DAILY, ORAL
     Route: 048
     Dates: start: 20041201
  3. ADVAIR DISKUS 100/50 [Concomitant]
  4. FLONASE [Concomitant]
  5. CALCIUM CITRATE (CALCIUM CITRATE) [Concomitant]
  6. COENZYME Q10 [Concomitant]
  7. LISINOPRIL [Concomitant]
  8. PREMPRO [Concomitant]

REACTIONS (1)
  - CONVULSION [None]
